FAERS Safety Report 8757789 (Version 1)
Quarter: 2012Q4

REPORT INFORMATION
  Report Type: 
  Country: BR (occurrence: BR)
  Receive Date: 20120828
  Receipt Date: 20120828
  Transmission Date: 20130627
  Serious: Yes (Death)
  Sender: FDA-Public Use
  Company Number: BR-ROCHE-1108450

PATIENT
  Sex: Male

DRUGS (3)
  1. AVASTIN [Suspect]
     Indication: COLORECTAL CANCER METASTATIC
     Dates: start: 20090910, end: 201005
  2. LEUCOVORIN [Concomitant]
  3. IRINOTECAN [Concomitant]

REACTIONS (1)
  - Death [Fatal]
